FAERS Safety Report 26206228 (Version 1)
Quarter: 2025Q4

REPORT INFORMATION
  Report Type: Report from Study
  Country: US (occurrence: None)
  Receive Date: 20251229
  Receipt Date: 20251229
  Transmission Date: 20260118
  Serious: Yes (Hospitalization)
  Sender: UCB
  Company Number: US-UCBSA-2025081709

PATIENT
  Age: 23 Year

DRUGS (1)
  1. BIMEKIZUMAB [Suspect]
     Active Substance: BIMEKIZUMAB
     Indication: Hidradenitis
     Dosage: 320 MILLIGRAM, EV 2 WEEKS(QOW)

REACTIONS (4)
  - Haematemesis [Recovering/Resolving]
  - Lethargy [Recovering/Resolving]
  - Loss of consciousness [Recovering/Resolving]
  - Hepatomegaly [Recovering/Resolving]
